FAERS Safety Report 7331375-1 (Version None)
Quarter: 2011Q1

REPORT INFORMATION
  Report Type: 
  Country: None (occurrence: None)
  Receive Date: 20110224
  Receipt Date: 20110214
  Transmission Date: 20110831
  Serious: Yes (Hospitalization)
  Sender: FDA-Public Use
  Company Number: 2011000724

PATIENT
  Age: 83 Year
  Sex: Female

DRUGS (1)
  1. TARCEVA [Suspect]
     Indication: LUNG NEOPLASM MALIGNANT
     Dosage: (MG),ORAL  5 YEARS 7 MONTHS 22 DAYS
     Route: 048

REACTIONS (3)
  - BRAIN NEOPLASM [None]
  - ACNE [None]
  - DYSPHONIA [None]
